FAERS Safety Report 10478875 (Version 1)
Quarter: 2014Q3

REPORT INFORMATION
  Report Type: Spontaneous
  Country: US (occurrence: US)
  Receive Date: 20140926
  Receipt Date: 20140926
  Transmission Date: 20150326
  Serious: No
  Sender: FDA-Public Use
  Company Number: US-MYLANLABS-2013S1026293

PATIENT
  Age: 81 Year
  Sex: Female

DRUGS (8)
  1. MELOXICAM. [Concomitant]
     Active Substance: MELOXICAM
     Dosage: 15 MG,QD
  2. LEVOTHYROXINE [Concomitant]
     Active Substance: LEVOTHYROXINE
     Dosage: 50 ?G,QD
  3. HYDROCHLOROTHIAZIDE W/MOEXIPRIL [Concomitant]
     Dosage: 12.5 MG,QD
  4. LUMIGAN [Concomitant]
     Active Substance: BIMATOPROST
     Dosage: .01 %,HS
  5. TIMOLOL [Concomitant]
     Active Substance: TIMOLOL
     Dosage: .5 %,QD
  6. POTASSIUM [Concomitant]
     Active Substance: POTASSIUM
     Dosage: 20 MEQ,BID
  7. ALENDRONATE SODIUM TABLETS, USP [Suspect]
     Active Substance: ALENDRONATE SODIUM
     Indication: OSTEOPOROSIS
     Dosage: 70 MG,BIWEEKLY
     Route: 048
     Dates: start: 20131025, end: 20131119
  8. HYDROCODONE [Concomitant]
     Active Substance: HYDROCODONE
     Dosage: 10 MG,PRN

REACTIONS (3)
  - Inappropriate schedule of drug administration [Recovered/Resolved]
  - No adverse event [Recovered/Resolved]
  - Accidental overdose [Recovered/Resolved]

NARRATIVE: CASE EVENT DATE: 20131025
